FAERS Safety Report 7905717-X (Version None)
Quarter: 2011Q4

REPORT INFORMATION
  Report Type: 
  Country: None (occurrence: None)
  Receive Date: 20111108
  Receipt Date: 20111103
  Transmission Date: 20120403
  Serious: Yes (Hospitalization, Disabling)
  Sender: FDA-Public Use
  Company Number: OSCN-NO-1012S-0285

PATIENT
  Age: 57 Year
  Sex: Male

DRUGS (7)
  1. PROHANCE [Suspect]
     Dosage: 15 ML, SINGLE DOSE, 15 ML, SINGLE, 15 ML, SINGLE DOSE, 15 ML, SINGLE DOSE,
     Dates: start: 20060718, end: 20060817
  2. PROHANCE [Suspect]
     Dosage: 15 ML, SINGLE DOSE, 15 ML, SINGLE, 15 ML, SINGLE DOSE, 15 ML, SINGLE DOSE,
     Dates: start: 20060920, end: 20060920
  3. PROHANCE [Suspect]
     Dosage: 15 ML, SINGLE DOSE, 15 ML, SINGLE, 15 ML, SINGLE DOSE, 15 ML, SINGLE DOSE,
     Dates: start: 20070110, end: 20070110
  4. PROHANCE [Suspect]
     Dosage: 15 ML, SINGLE DOSE, 15 ML, SINGLE, 15 ML, SINGLE DOSE, 15 ML, SINGLE DOSE,
     Dates: start: 20070501, end: 20070501
  5. OMNISCAN [Suspect]
     Indication: CENTRAL NERVOUS SYSTEM ABSCESS
     Dosage: 15 ML, SINGLE DOSE, INTRAVENOUS;15 ML, SINGLE DOSE, INTRAVENOUS; 15 ML, SINGLE DOSE, INTRAVENOUS
     Route: 042
     Dates: start: 20060513, end: 20060513
  6. OMNISCAN [Suspect]
     Indication: CENTRAL NERVOUS SYSTEM ABSCESS
     Dosage: 15 ML, SINGLE DOSE, INTRAVENOUS;15 ML, SINGLE DOSE, INTRAVENOUS; 15 ML, SINGLE DOSE, INTRAVENOUS
     Route: 042
     Dates: start: 20060823, end: 20060823
  7. OMNISCAN [Suspect]
     Indication: CENTRAL NERVOUS SYSTEM ABSCESS
     Dosage: 15 ML, SINGLE DOSE, INTRAVENOUS;15 ML, SINGLE DOSE, INTRAVENOUS; 15 ML, SINGLE DOSE, INTRAVENOUS
     Route: 042
     Dates: start: 20060831, end: 20060831

REACTIONS (3)
  - NEPHROGENIC SYSTEMIC FIBROSIS [None]
  - RENAL TRANSPLANT [None]
  - IMMOBILE [None]
